FAERS Safety Report 10108994 (Version 1)
Quarter: 2014Q2

REPORT INFORMATION
  Report Type: Spontaneous
  Country: US (occurrence: US)
  Receive Date: 20140425
  Receipt Date: 20140425
  Transmission Date: 20141212
  Serious: Yes (Hospitalization)
  Sender: FDA-Public Use
  Company Number: US-BAYER-2014-059548

PATIENT
  Age: 30 Year
  Sex: Female
  Weight: 88.89 kg

DRUGS (5)
  1. YASMIN [Suspect]
  2. YAZ [Suspect]
  3. FLEXERIL [Concomitant]
     Dosage: UNK
     Dates: start: 20090913
  4. PROVENTIL [Concomitant]
     Dosage: UNK
     Dates: start: 20090913
  5. VICODIN [Concomitant]
     Dosage: 5/500 MG

REACTIONS (2)
  - Pulmonary embolism [None]
  - Deep vein thrombosis [None]
